FAERS Safety Report 20742097 (Version 4)
Quarter: 2022Q2

REPORT INFORMATION
  Report Type: Report from Study
  Country: US (occurrence: US)
  Receive Date: 20220423
  Receipt Date: 20220527
  Transmission Date: 20220721
  Serious: Yes (Other)
  Sender: FDA-Public Use
  Company Number: US-NOVARTISPH-NVSC2022US094181

PATIENT
  Sex: Female

DRUGS (3)
  1. ENTRESTO [Suspect]
     Active Substance: SACUBITRIL\VALSARTAN
     Indication: Product used for unknown indication
     Dosage: 1 DOSAGE FORM, BID (97/103 MG)
     Route: 065
  2. ELIQUIS [Suspect]
     Active Substance: APIXABAN
     Indication: Product used for unknown indication
     Dosage: UNK
     Route: 065
  3. LIPITOR [Suspect]
     Active Substance: ATORVASTATIN CALCIUM
     Indication: Product used for unknown indication
     Dosage: UNK
     Route: 065

REACTIONS (13)
  - Peripheral swelling [Not Recovered/Not Resolved]
  - Pain [Not Recovered/Not Resolved]
  - Renal impairment [Unknown]
  - Vomiting [Unknown]
  - Muscular weakness [Not Recovered/Not Resolved]
  - Feeling abnormal [Unknown]
  - Renal disorder [Not Recovered/Not Resolved]
  - Adverse drug reaction [Unknown]
  - Lethargy [Not Recovered/Not Resolved]
  - Drug intolerance [Unknown]
  - Fatigue [Unknown]
  - Hypotension [Not Recovered/Not Resolved]
  - Cough [Unknown]
